FAERS Safety Report 20554408 (Version 1)
Quarter: 2022Q1

REPORT INFORMATION
  Report Type: Spontaneous
  Country: CH (occurrence: CH)
  Receive Date: 20220304
  Receipt Date: 20220304
  Transmission Date: 20220423
  Serious: Yes (Other)
  Sender: FDA-Public Use
  Company Number: None

PATIENT
  Age: 38 Year
  Sex: Male
  Weight: 71 kg

DRUGS (8)
  1. VOTRIENT [Suspect]
     Active Substance: PAZOPANIB HYDROCHLORIDE
     Indication: Hereditary haemorrhagic telangiectasia
     Dosage: 50 MG, QD
     Route: 048
     Dates: start: 20200818, end: 20201130
  2. VOTRIENT [Suspect]
     Active Substance: PAZOPANIB HYDROCHLORIDE
     Dosage: 100 MG, QD
     Route: 048
     Dates: start: 20201201
  3. METOPROLOL SUCCINATE [Concomitant]
     Active Substance: METOPROLOL SUCCINATE
     Indication: Hypertension
     Dosage: 100 MG, QD (LONGTERM)
     Route: 048
  4. LISINOPRIL [Concomitant]
     Active Substance: LISINOPRIL
     Indication: Hypertension
     Dosage: 20 MG, QD (LONGTERM)
     Route: 048
  5. SINTROM [Concomitant]
     Active Substance: ACENOCOUMAROL
     Indication: Cardiac valve prosthesis user
     Dosage: UNK (ACCORDING TO INR (1))
     Route: 048
     Dates: start: 2018
  6. FERINJECT [Concomitant]
     Active Substance: FERRIC CARBOXYMALTOSE
     Indication: Anaemia
     Dosage: UNK (LONGTERM)
     Route: 048
  7. MALTOFER [Concomitant]
     Indication: Anaemia
     Dosage: 2 DOSAGE FORM (LONGTERM)
     Route: 065
  8. SORBISTERIT [Concomitant]
     Indication: Hyperkalaemia
     Dosage: UNK (WEEK, LONGTERM, ONE TO TWO TIMES PER WEEK)
     Route: 065

REACTIONS (2)
  - Tooth fracture [Not Recovered/Not Resolved]
  - Off label use [Unknown]

NARRATIVE: CASE EVENT DATE: 20200818
